FAERS Safety Report 10379039 (Version 5)
Quarter: 2015Q2

REPORT INFORMATION
  Report Type: Spontaneous
  Country: US (occurrence: US)
  Receive Date: 20140812
  Receipt Date: 20150514
  Transmission Date: 20150821
  Serious: Yes (Death, Hospitalization, Other)
  Sender: FDA-Public Use
  Company Number: US-009507513-1408USA005703

PATIENT
  Sex: Male
  Weight: 83.22 kg

DRUGS (2)
  1. JANUVIA [Suspect]
     Active Substance: SITAGLIPTIN PHOSPHATE
     Indication: TYPE 2 DIABETES MELLITUS
     Dosage: 100 MG, QD
     Route: 048
     Dates: start: 20120821, end: 20121028
  2. JANUMET [Suspect]
     Active Substance: METFORMIN HYDROCHLORIDE\SITAGLIPTIN PHOSPHATE
     Indication: TYPE 2 DIABETES MELLITUS
     Dosage: 500 MG/50 MG, QD
     Route: 048
     Dates: start: 20121023, end: 20130402

REACTIONS (27)
  - Pancreatitis chronic [Not Recovered/Not Resolved]
  - Pleural effusion [Unknown]
  - Haemorrhoids [Unknown]
  - Constipation [Not Recovered/Not Resolved]
  - Metastases to liver [Unknown]
  - Spinal fusion surgery [Unknown]
  - Ileus paralytic [Recovering/Resolving]
  - Inappropriate schedule of drug administration [Unknown]
  - Erectile dysfunction [Unknown]
  - Renal cyst [Unknown]
  - Intervertebral disc degeneration [Unknown]
  - Osteoarthritis [Unknown]
  - Colitis [Unknown]
  - Atelectasis [Unknown]
  - Pancreatic neuroendocrine tumour metastatic [Fatal]
  - Ascites [Unknown]
  - Gallbladder cholesterolosis [Unknown]
  - Post procedural hypothyroidism [Unknown]
  - Metastatic lymphoma [Unknown]
  - Small intestinal obstruction [Recovering/Resolving]
  - Pancreatitis [Unknown]
  - Depression [Unknown]
  - Ventricular extrasystoles [Unknown]
  - Metastases to lymph nodes [Unknown]
  - Radioactive iodine therapy [Unknown]
  - Drug ineffective [Unknown]
  - Colon adenoma [Unknown]

NARRATIVE: CASE EVENT DATE: 20121023
